FAERS Safety Report 22180827 (Version 1)
Quarter: 2023Q2

REPORT INFORMATION
  Report Type: Spontaneous
  Country: US (occurrence: US)
  Receive Date: 20230406
  Receipt Date: 20230406
  Transmission Date: 20230721
  Serious: Yes (Hospitalization, Other)
  Sender: FDA-Public Use
  Company Number: US-AMGEN-USASP2023056066

PATIENT
  Age: 16 Year
  Sex: Female
  Weight: 98.7 kg

DRUGS (7)
  1. RITUXIMAB [Suspect]
     Active Substance: RITUXIMAB
     Indication: Antiphospholipid syndrome
     Dosage: UNK
     Route: 065
  2. Immunoglobulin [Concomitant]
     Indication: Antiphospholipid syndrome
     Dosage: UNK
     Route: 042
  3. METHYLPREDNISOLONE [Concomitant]
     Active Substance: METHYLPREDNISOLONE
     Indication: Antiphospholipid syndrome
     Dosage: UNK
     Route: 065
  4. ECULIZUMAB [Concomitant]
     Active Substance: ECULIZUMAB
     Indication: Antiphospholipid syndrome
     Dosage: UNK
     Route: 065
  5. FLUOXETINE [Concomitant]
     Active Substance: FLUOXETINE HYDROCHLORIDE
     Indication: Product used for unknown indication
     Dosage: UNK
     Route: 065
  6. AMPHETAMINE [Concomitant]
     Active Substance: AMPHETAMINE
     Indication: Product used for unknown indication
     Dosage: UNK
     Route: 065
  7. DEXTROAMPHETAMINE [Concomitant]
     Active Substance: DEXTROAMPHETAMINE
     Indication: Product used for unknown indication
     Dosage: UNK
     Route: 065

REACTIONS (15)
  - Cerebral venous sinus thrombosis [Recovered/Resolved]
  - Intestinal ischaemia [Recovered/Resolved]
  - Lower gastrointestinal haemorrhage [Unknown]
  - Renal infarct [Unknown]
  - Hepatic infarction [Unknown]
  - Vena cava thrombosis [Unknown]
  - Splenic vein thrombosis [Unknown]
  - Mesenteric vein thrombosis [Unknown]
  - Encephalopathy [Unknown]
  - Portal vein thrombosis [Unknown]
  - Lactic acidosis [Unknown]
  - Jugular vein thrombosis [Unknown]
  - Hepatic enzyme abnormal [Unknown]
  - Coagulopathy [Unknown]
  - Off label use [Unknown]
